FAERS Safety Report 4810794-9 (Version None)
Quarter: 2005Q4

REPORT INFORMATION
  Report Type: 
  Country: None (occurrence: None)
  Receive Date: 20051024
  Receipt Date: 20051011
  Transmission Date: 20060501
  Serious: Yes (Other)
  Sender: FDA-Public Use
  Company Number: 2005140442

PATIENT
  Age: 28 Year
  Sex: Female
  Weight: 49.8957 kg

DRUGS (1)
  1. UNISOM [Suspect]
     Dosage: 20 TABS ONCE, ORAL
     Route: 048
     Dates: start: 20051011, end: 20051011

REACTIONS (2)
  - OVERDOSE [None]
  - SOMNOLENCE [None]
